FAERS Safety Report 17651084 (Version 3)
Quarter: 2020Q3

REPORT INFORMATION
  Report Type: Spontaneous
  Country: NL (occurrence: NL)
  Receive Date: 20200408
  Receipt Date: 20200829
  Transmission Date: 20201102
  Serious: Yes (Hospitalization, Other)
  Sender: FDA-Public Use
  Company Number: NL-AUROBINDO-AUR-APL-2020-016682

PATIENT
  Age: 61 Year
  Sex: Male
  Weight: 73 kg

DRUGS (12)
  1. DUODOPA [Suspect]
     Active Substance: CARBIDOPA\LEVODOPA
     Dosage: DAY PUMP: MD: 6.5 ML CD: 5.8 ML ED: 2.8 ML, NIGHT PUMP: CD: 4.9 ML ED: 2.8 ML
     Route: 050
  2. DUODOPA [Suspect]
     Active Substance: CARBIDOPA\LEVODOPA
     Dosage: MD: 6.5 CD: 4.8 ED: 2.5, CND: 4.4, END: 2.5
     Route: 050
  3. DUODOPA [Suspect]
     Active Substance: CARBIDOPA\LEVODOPA
     Dosage: MD: 6.5 CD: 4.9 ED: 2.5, CND: 4.4, END: 2.5
     Route: 050
  4. MOVICOLON [Concomitant]
     Active Substance: POLYETHYLENE GLYCOL 3350\POTASSIUM CHLORIDE\SODIUM BICARBONATE\SODIUM CHLORIDE
     Indication: ABNORMAL FAECES
     Dosage: 2 DOSAGE FORM
     Route: 065
  5. DUODOPA [Suspect]
     Active Substance: CARBIDOPA\LEVODOPA
     Dosage: MD: 6.5 CD: 4.9 ED: 2.5, CND: 4.9, END: 2.5
     Route: 065
     Dates: start: 20110629
  6. CLOZAPINE. [Suspect]
     Active Substance: CLOZAPINE
     Indication: PRODUCT USED FOR UNKNOWN INDICATION
     Dosage: 25 MILLIGRAM
     Route: 065
  7. DUODOPA [Suspect]
     Active Substance: CARBIDOPA\LEVODOPA
     Dosage: MD 6.0 ML CONTINUOUS DOSE 5.7 ML/HR EXTRA DOSE 2.5 ML NIGHT TIME: CD 5.3 ML/HR
     Route: 065
  8. DUODOPA [Suspect]
     Active Substance: CARBIDOPA\LEVODOPA
     Dosage: MD: 6.5 CD: 4.9 ED: 2.5, CND: 4.9
     Route: 065
     Dates: start: 201910
  9. DUODOPA [Suspect]
     Active Substance: CARBIDOPA\LEVODOPA
     Dosage: MORNING DOSE: 0 CONTINUOUS DOSE: 5.5 EXTRA DOSE: 2.5 NIGHT DOSE: 4.4
     Route: 065
     Dates: start: 201707
  10. DUODOPA [Suspect]
     Active Substance: CARBIDOPA\LEVODOPA
     Indication: PARKINSON^S DISEASE
     Dosage: CD: 5.8, ED: 2.5, CND: 5.0
     Route: 065
  11. DUODOPA [Suspect]
     Active Substance: CARBIDOPA\LEVODOPA
     Dosage: DAY PUMP: MD: 6.5 ML CD: 5.8 ML ED: 2.8 ML,NIGHT PUMP: CD: 4.9 ML
     Route: 065
  12. DUODOPA [Suspect]
     Active Substance: CARBIDOPA\LEVODOPA
     Dosage: MD: 6.5 CD: 5.9 ED: 2.5
     Route: 065
     Dates: start: 201910

REACTIONS (51)
  - Musculoskeletal stiffness [Recovered/Resolved]
  - Fatigue [Not Recovered/Not Resolved]
  - Parkinson^s disease [Not Recovered/Not Resolved]
  - Unevaluable event [Recovered/Resolved]
  - Fibroma [Recovered/Resolved]
  - Dyskinesia [Not Recovered/Not Resolved]
  - Memory impairment [Not Recovered/Not Resolved]
  - Stoma site inflammation [Not Recovered/Not Resolved]
  - Hallucination [Not Recovered/Not Resolved]
  - Emotional distress [Unknown]
  - Burning sensation [Not Recovered/Not Resolved]
  - Pain in extremity [Not Recovered/Not Resolved]
  - Abnormal dreams [Not Recovered/Not Resolved]
  - Weight decreased [Recovered/Resolved]
  - Feeling abnormal [Recovered/Resolved]
  - Compulsions [Not Recovered/Not Resolved]
  - Device leakage [Unknown]
  - Bowel movement irregularity [Unknown]
  - Psychotic disorder [Unknown]
  - Restlessness [Not Recovered/Not Resolved]
  - Seizure [Recovered/Resolved]
  - Speech disorder [Not Recovered/Not Resolved]
  - Device issue [Not Recovered/Not Resolved]
  - Freezing phenomenon [Not Recovered/Not Resolved]
  - Stoma site erythema [Recovering/Resolving]
  - Gastrointestinal disorder [Recovered/Resolved]
  - Stoma site discharge [Not Recovered/Not Resolved]
  - Loss of personal independence in daily activities [Not Recovered/Not Resolved]
  - Stress [Not Recovered/Not Resolved]
  - Muscle rigidity [Not Recovered/Not Resolved]
  - Therapeutic product effect incomplete [Recovered/Resolved]
  - Cognitive disorder [Not Recovered/Not Resolved]
  - Inguinal hernia [Not Recovered/Not Resolved]
  - Malaise [Not Recovered/Not Resolved]
  - Hypokinesia [Not Recovered/Not Resolved]
  - Constipation [Recovered/Resolved]
  - Abnormal behaviour [Recovered/Resolved]
  - Insomnia [Recovered/Resolved]
  - Incorrect dose administered [Recovered/Resolved]
  - Flatulence [Not Recovered/Not Resolved]
  - Delusion [Recovering/Resolving]
  - Back pain [Not Recovered/Not Resolved]
  - Asthenia [Not Recovered/Not Resolved]
  - Stoma site reaction [Not Recovered/Not Resolved]
  - Tension [Not Recovered/Not Resolved]
  - Hallucination, auditory [Recovering/Resolving]
  - On and off phenomenon [Recovered/Resolved]
  - Product cleaning inadequate [Not Recovered/Not Resolved]
  - Fear [Recovered/Resolved]
  - Stoma site pain [Not Recovered/Not Resolved]
  - Dystonia [Not Recovered/Not Resolved]

NARRATIVE: CASE EVENT DATE: 2018
